FAERS Safety Report 24561612 (Version 4)
Quarter: 2025Q3

REPORT INFORMATION
  Report Type: Spontaneous
  Country: JP (occurrence: JP)
  Receive Date: 20241029
  Receipt Date: 20250810
  Transmission Date: 20251021
  Serious: Yes (Life-Threatening, Other)
  Sender: ALEXION PHARMACEUTICALS
  Company Number: JP-ASTRAZENECA-240108665_013120_P_1

PATIENT
  Age: 68 Year
  Sex: Male

DRUGS (4)
  1. DURVALUMAB [Suspect]
     Active Substance: DURVALUMAB
     Indication: Hepatocellular carcinoma
     Dosage: 1500 MILLIGRAM, Q4W
  2. DURVALUMAB [Suspect]
     Active Substance: DURVALUMAB
     Dosage: 1500 MILLIGRAM, Q4W
  3. TREMELIMUMAB [Suspect]
     Active Substance: TREMELIMUMAB
     Indication: Hepatocellular carcinoma
  4. TREMELIMUMAB [Suspect]
     Active Substance: TREMELIMUMAB

REACTIONS (4)
  - Immune-mediated hepatic disorder [Unknown]
  - Immune-mediated enterocolitis [Unknown]
  - Pneumocystis jirovecii pneumonia [Unknown]
  - Cerebral infarction [Unknown]
